FAERS Safety Report 10018685 (Version 1)
Quarter: 2014Q1

REPORT INFORMATION
  Report Type: Spontaneous
  Country: US (occurrence: None)
  Receive Date: 20140314
  Receipt Date: 20140314
  Transmission Date: 20141002
  Serious: Yes (Life-Threatening)
  Sender: FDA-Public Use
  Company Number: None

PATIENT
  Age: 57 Year
  Sex: Female
  Weight: 77.11 kg

DRUGS (2)
  1. TRAMADOL [Suspect]
     Indication: CHEST PAIN
     Dosage: TRAMADOL 50MG 2PILLS EVERY 6 HOURS TAKEN BY MOTH
     Route: 048
  2. TRAMADOL [Suspect]
     Indication: ROAD TRAFFIC ACCIDENT
     Dosage: TRAMADOL 50MG 2PILLS EVERY 6 HOURS TAKEN BY MOTH
     Route: 048

REACTIONS (11)
  - Myalgia [None]
  - Dyspnoea [None]
  - Abasia [None]
  - Anxiety [None]
  - Restless legs syndrome [None]
  - Sensory disturbance [None]
  - Fatigue [None]
  - Cardiac disorder [None]
  - Insomnia [None]
  - Bundle branch block left [None]
  - Ejection fraction decreased [None]
